FAERS Safety Report 8572582-X (Version None)
Quarter: 2012Q3

REPORT INFORMATION
  Report Type: 
  Country: None (occurrence: None)
  Receive Date: 20120806
  Receipt Date: 20120724
  Transmission Date: 20120928
  Serious: Yes (Other)
  Sender: FDA-Public Use
  Company Number: ZA-ROCHE-1095676

PATIENT
  Sex: Female
  Weight: 67 kg

DRUGS (12)
  1. MESNA [Concomitant]
     Dosage: OVER 40 MINS IN 200 ML.
     Route: 042
  2. ACTEMRA [Suspect]
     Indication: PRODUCT USED FOR UNKNOWN INDICATION
  3. CALCIUM [Concomitant]
  4. GLUCOPHAGE [Concomitant]
  5. CYCLOPHOSPHAMIDE [Concomitant]
     Dosage: OVER 40 MINS
     Route: 042
  6. SOLU-MEDROL [Concomitant]
     Route: 042
  7. ARAVA [Concomitant]
     Dates: start: 20120101
  8. CHLOROQUINE PHOSPHATE [Concomitant]
     Dates: start: 20090101
  9. CITALOPRAM HYDROBROMIDE [Concomitant]
  10. METHOTREXATE [Concomitant]
     Dates: start: 20080101
  11. CELEBREX [Concomitant]
  12. LYRICA [Concomitant]

REACTIONS (1)
  - ENCEPHALITIS [None]
